FAERS Safety Report 6675757-X (Version None)
Quarter: 2010Q2

REPORT INFORMATION
  Report Type: 
  Country: None (occurrence: None)
  Receive Date: 20100409
  Receipt Date: 20100406
  Transmission Date: 20101027
  Serious: Yes (Hospitalization)
  Sender: FDA-Public Use
  Company Number: FR-MERCK-1004FRA00033

PATIENT
  Age: 52 Year
  Sex: Male

DRUGS (6)
  1. FOSAMAX [Suspect]
     Indication: OSTEOPOROSIS
     Route: 048
     Dates: start: 20100201
  2. PREDNISONE [Concomitant]
     Indication: WEGENER'S GRANULOMATOSIS
     Route: 048
  3. NEXIUM [Concomitant]
     Route: 048
  4. ZELITREX [Concomitant]
     Route: 048
  5. BACTRIM [Concomitant]
     Route: 048
  6. CELLCEPT [Concomitant]
     Route: 065

REACTIONS (2)
  - MALAISE [None]
  - PRESYNCOPE [None]
